FAERS Safety Report 5083035-8 (Version None)
Quarter: 2006Q3

REPORT INFORMATION
  Report Type: 
  Country: None (occurrence: None)
  Receive Date: 20060814
  Receipt Date: 20060731
  Transmission Date: 20061208
  Serious: Yes (Hospitalization)
  Sender: FDA-Public Use
  Company Number: 2006094886

PATIENT
  Age: 70 Year
  Sex: Female

DRUGS (1)
  1. SULFASALAZINE [Suspect]
     Indication: RHEUMATOID ARTHRITIS
     Dosage: ORAL
     Route: 048

REACTIONS (10)
  - DRUG HYPERSENSITIVITY [None]
  - EOSINOPHIL COUNT INCREASED [None]
  - ERYTHEMA [None]
  - GALLBLADDER OEDEMA [None]
  - LYMPHADENOPATHY [None]
  - OEDEMA [None]
  - PRURITUS [None]
  - PYREXIA [None]
  - RASH [None]
  - WHITE BLOOD CELL COUNT INCREASED [None]
